FAERS Safety Report 17091242 (Version 1)
Quarter: 2019Q4

REPORT INFORMATION
  Report Type: Spontaneous
  Country: US (occurrence: US)
  Receive Date: 20191129
  Receipt Date: 20191129
  Transmission Date: 20200122
  Serious: Yes (Disabling, Other)
  Sender: FDA-Public Use
  Company Number: None

PATIENT
  Age: 37 Year
  Sex: Male
  Weight: 94.5 kg

DRUGS (7)
  1. PAROXETINE. [Concomitant]
     Active Substance: PAROXETINE
  2. MAGNESIUM OXIDE 400MG [Concomitant]
     Active Substance: MAGNESIUM OXIDE
  3. DIAZEPAM. [Concomitant]
     Active Substance: DIAZEPAM
  4. QUETIAPINE. [Concomitant]
     Active Substance: QUETIAPINE
  5. VITAMIN D3 2000 IU [Concomitant]
  6. LORAZEPAM (GENERIC ATIVAN) [Suspect]
     Active Substance: LORAZEPAM
     Indication: ANXIETY
     Dosage: ?          QUANTITY:1 TABLET(S);?
     Route: 048
     Dates: start: 20191002
  7. BISOPROLOL [Concomitant]
     Active Substance: BISOPROLOL

REACTIONS (2)
  - Panic attack [None]
  - Withdrawal syndrome [None]

NARRATIVE: CASE EVENT DATE: 20191109
